FAERS Safety Report 9644266 (Version 1)
Quarter: 2013Q4

REPORT INFORMATION
  Report Type: Spontaneous
  Country: FR (occurrence: FR)
  Receive Date: 20131025
  Receipt Date: 20131025
  Transmission Date: 20140711
  Serious: Yes (Hospitalization)
  Sender: FDA-Public Use
  Company Number: FR-PFIZER INC-2013303545

PATIENT
  Age: 73 Year
  Sex: Male

DRUGS (5)
  1. INIPOMP [Suspect]
     Dosage: 20 MG, UNK
     Route: 048
  2. ZYLORIC [Suspect]
     Dosage: 300 MG, UNK
     Route: 048
     Dates: end: 20130603
  3. KARDEGIC [Suspect]
     Dosage: 75 MG, UNK
     Route: 048
  4. SOTALEX [Suspect]
     Dosage: 80 MG, UNK
     Route: 048
  5. KENZEN [Suspect]
     Dosage: UNK
     Route: 048

REACTIONS (1)
  - Pemphigoid [Recovered/Resolved]
